FAERS Safety Report 17403514 (Version 1)
Quarter: 2020Q1

REPORT INFORMATION
  Report Type: Report from Study
  Country: US (occurrence: US)
  Receive Date: 20200211
  Receipt Date: 20200211
  Transmission Date: 20200409
  Serious: Yes (Death)
  Sender: FDA-Public Use
  Company Number: US-ADAMAS PHARMA, LLC-2020ADA00301

PATIENT
  Sex: Male

DRUGS (11)
  1. GOCOVRI [Suspect]
     Active Substance: AMANTADINE
     Indication: DYSKINESIA
     Dosage: 68.5 MG, 1X/DAY AT BEDTIME X 7 DAYS
     Route: 048
     Dates: start: 20191218, end: 20191224
  2. ASPIRIN. [Concomitant]
     Active Substance: ASPIRIN
  3. TRAMADOL. [Concomitant]
     Active Substance: TRAMADOL
  4. BIOTIN [Concomitant]
     Active Substance: BIOTIN
  5. SINEMET [Concomitant]
     Active Substance: CARBIDOPA\LEVODOPA
  6. VITAMIN B12 [Concomitant]
     Active Substance: CYANOCOBALAMIN
  7. MELATONIN [Concomitant]
     Active Substance: MELATONIN
  8. MULTIPLE VITAMIN [Concomitant]
     Active Substance: VITAMINS
  9. GOCOVRI [Suspect]
     Active Substance: AMANTADINE
     Dosage: 2 CAPSULES (TOTAL DOSE 137 MG) 1X/DAY AT BEDTIME
     Route: 048
     Dates: start: 20191225
  10. ETODOLAC. [Concomitant]
     Active Substance: ETODOLAC
  11. MIRALAX [Concomitant]
     Active Substance: POLYETHYLENE GLYCOL 3350

REACTIONS (1)
  - Death [Fatal]
